FAERS Safety Report 19963680 (Version 2)
Quarter: 2021Q4

REPORT INFORMATION
  Report Type: Report from Study
  Country: US (occurrence: US)
  Receive Date: 20211018
  Receipt Date: 20211130
  Transmission Date: 20220303
  Serious: Yes (Other)
  Sender: FDA-Public Use
  Company Number: US-JNJFOC-20210540481

PATIENT
  Age: 37 Year
  Sex: Female
  Weight: 49.1 kg

DRUGS (5)
  1. SELEXIPAG [Suspect]
     Active Substance: SELEXIPAG
     Indication: Pulmonary arterial hypertension
     Route: 048
     Dates: start: 201911
  2. SELEXIPAG [Suspect]
     Active Substance: SELEXIPAG
     Route: 048
     Dates: start: 201911
  3. AMBRISENTAN [Concomitant]
     Active Substance: AMBRISENTAN
     Indication: Product used for unknown indication
     Route: 065
  4. NIFEDIPINE [Concomitant]
     Active Substance: NIFEDIPINE
     Indication: Product used for unknown indication
     Route: 065
  5. ADCIRCA [Concomitant]
     Active Substance: TADALAFIL
     Indication: Product used for unknown indication
     Route: 065

REACTIONS (8)
  - Hypothyroidism [Unknown]
  - Palpitations [Recovering/Resolving]
  - Catheterisation cardiac [Recovering/Resolving]
  - Food allergy [Unknown]
  - Migraine [Unknown]
  - Pain in jaw [Unknown]
  - Myalgia [Unknown]
  - Oedema [Unknown]

NARRATIVE: CASE EVENT DATE: 20191101
